FAERS Safety Report 8579934-2 (Version None)
Quarter: 2012Q3

REPORT INFORMATION
  Report Type: 
  Country: None (occurrence: None)
  Receive Date: 20120808
  Receipt Date: 20120726
  Transmission Date: 20120928
  Serious: Yes (Other)
  Sender: FDA-Public Use
  Company Number: US-ELI_LILLY_AND_COMPANY-US200908000869

PATIENT
  Sex: Male

DRUGS (6)
  1. KLONOPIN [Concomitant]
  2. COGENTIN [Concomitant]
  3. ZYPREXA [Suspect]
     Dosage: 20 MG, DAILY (1/D)
     Dates: start: 20070101
  4. ZYPREXA [Suspect]
     Indication: SCHIZOPHRENIA
     Dosage: 20 MG, DAILY (1/D)
     Dates: start: 20030101, end: 20070101
  5. GEODON /01487002/ [Concomitant]
     Indication: SCHIZOPHRENIA
     Dates: start: 20070101
  6. LAMICTAL [Concomitant]

REACTIONS (2)
  - INCREASED APPETITE [None]
  - WEIGHT INCREASED [None]
